FAERS Safety Report 9791215 (Version 1)
Quarter: 2014Q1

REPORT INFORMATION
  Report Type: Spontaneous
  Country: FR (occurrence: FR)
  Receive Date: 20140101
  Receipt Date: 20140101
  Transmission Date: 20141002
  Serious: Yes (Other)
  Sender: FDA-Public Use
  Company Number: FR-ROCHE-1327557

PATIENT
  Age: 28 Year
  Sex: Female

DRUGS (3)
  1. ZELBORAF [Suspect]
     Indication: METASTATIC MALIGNANT MELANOMA
     Route: 048
     Dates: start: 20131203, end: 20131210
  2. PARACETAMOL [Concomitant]
     Route: 048
     Dates: start: 20131203
  3. CAFFEINE [Concomitant]

REACTIONS (2)
  - Erythema [Recovering/Resolving]
  - Burning sensation [Recovering/Resolving]
